FAERS Safety Report 12548690 (Version 1)
Quarter: 2016Q3

REPORT INFORMATION
  Report Type: Spontaneous
  Country: US (occurrence: None)
  Receive Date: 20160711
  Receipt Date: 20160711
  Transmission Date: 20161109
  Serious: Yes (Hospitalization, Disabling, Other)
  Sender: FDA-Public Use
  Company Number: None

PATIENT
  Age: 37 Year
  Sex: Male
  Weight: 102.06 kg

DRUGS (4)
  1. PREDIZONE [Concomitant]
  2. CALCIUM [Concomitant]
     Active Substance: CALCIUM
  3. REMICADE [Suspect]
     Active Substance: INFLIXIMAB
     Indication: INFLAMMATION
     Dosage: EVERY 6-8 WEEKS INTO A VEIN
     Route: 042
  4. VITAMIN B12 [Concomitant]
     Active Substance: CYANOCOBALAMIN

REACTIONS (4)
  - Visual acuity reduced [None]
  - Optic neuritis [None]
  - Toxicity to various agents [None]
  - Blindness [None]
